FAERS Safety Report 6856605-1 (Version None)
Quarter: 2010Q3

REPORT INFORMATION
  Report Type: 
  Country: None (occurrence: None)
  Receive Date: 20100719
  Receipt Date: 20100714
  Transmission Date: 20110219
  Serious: Yes (Death)
  Sender: FDA-Public Use
  Company Number: JP-ROCHE-715411

PATIENT
  Age: 60 Year
  Sex: Male

DRUGS (14)
  1. ROCEPHIN [Suspect]
     Indication: C-REACTIVE PROTEIN INCREASED
     Route: 041
     Dates: start: 20100614, end: 20100615
  2. SOLULACT [Concomitant]
     Dosage: ROUTE: INTRAVENOUS (NOT OTHERWISE SPECIFIED). NOTE: DOSAGE IS UNCERTAIN.
     Route: 042
  3. SOLULACT [Concomitant]
     Dosage: DRUG: SOLULACT D. ROUTE: INTRAVENOUS (NOT OTHERWISE SPECIFIED), NOTE: DOSAGE IS UNCERTAIN.
     Route: 041
  4. NAUZELIN [Concomitant]
     Route: 048
  5. ALDACTONE [Concomitant]
     Route: 048
  6. GASPORT [Concomitant]
     Route: 048
  7. ASPARA [Concomitant]
     Dosage: DRUG: ASPARA POTASSIUM(POTASSIUM L-ASPARTATE). DOSE FORM: POWDERED MEDICINE.
     Route: 048
  8. LASIX [Concomitant]
     Route: 048
  9. MAINTATE [Concomitant]
     Route: 048
  10. MUCODYNE [Concomitant]
     Route: 048
  11. DIGOSIN [Concomitant]
     Route: 048
  12. HOKUNALIN [Concomitant]
     Dosage: DRUG: HOKUNALIN:TAPE(TULOBUTEROL), DOSE FORM: TAPE
     Route: 003
  13. WARFARIN SODIUM [Concomitant]
     Dosage: DRUG: WARFARIN(WARFARIN POTASSIUM)
     Route: 048
  14. MYSLEE [Concomitant]
     Route: 048

REACTIONS (4)
  - DEPRESSED LEVEL OF CONSCIOUSNESS [None]
  - PLATELET COUNT DECREASED [None]
  - RENAL IMPAIRMENT [None]
  - TRANSAMINASES INCREASED [None]
